FAERS Safety Report 9294389 (Version 1)
Quarter: 2013Q1

REPORT INFORMATION
  Report Type: Spontaneous
  Country: US (occurrence: None)
  Receive Date: 20121227
  Receipt Date: 20121227
  Transmission Date: 20140127
  Serious: Yes (Hospitalization)
  Sender: FDA-Public Use
  Company Number: PHEH2012US020977

PATIENT
  Age: 78 Year
  Sex: Female
  Weight: 69.8 kg

DRUGS (8)
  1. AFINITOR [Suspect]
     Indication: BREAST CANCER
     Route: 048
     Dates: start: 20120912, end: 20121024
  2. EXEMESTANE (EXEMESTANE) [Concomitant]
  3. COMBIVENT (IPRATROPIUM BROMIDE, SALBUTAMOL SULFATE) [Concomitant]
  4. TAMOXIFEN [Concomitant]
  5. AMLODIPINE (AMLODIPINE) [Concomitant]
  6. ACETYLSALICYLIC ACID (ACETYLSALICYLIC ACID) [Concomitant]
  7. ISOSORBIDE (ISOSORBIDE) [Concomitant]
  8. NEUTRA-PHOS (POTASSIUM PHOSPHATE DIBASIC, POTASSIUM PHOSPHATE MONOBASIC, SODIUM PHOSPHATE DIBASIC, SODIUM PHOSPHATE MONOBASIC (ANHYDRATE)) [Concomitant]

REACTIONS (5)
  - Stomatitis [None]
  - Pneumonitis [None]
  - Hyperglycaemia [None]
  - Oropharyngeal pain [None]
  - Dyspnoea [None]
